FAERS Safety Report 17970160 (Version 1)
Quarter: 2020Q3

REPORT INFORMATION
  Report Type: Report from Study
  Country: None (occurrence: US)
  Receive Date: 20200701
  Receipt Date: 20200701
  Transmission Date: 20201103
  Serious: Yes (Other)
  Sender: FDA-Public Use
  Company Number: US-ABBVIE-20K-163-3380904-00

PATIENT
  Sex: Male

DRUGS (1)
  1. HUMIRA [Suspect]
     Active Substance: ADALIMUMAB
     Indication: RHEUMATOID ARTHRITIS
     Route: 058
     Dates: start: 20200326

REACTIONS (8)
  - Joint stiffness [Unknown]
  - Rheumatoid arthritis [Recovering/Resolving]
  - Joint swelling [Unknown]
  - Osteoarthritis [Recovering/Resolving]
  - Gait disturbance [Not Recovered/Not Resolved]
  - Arthralgia [Unknown]
  - Incision site pain [Unknown]
  - Loss of personal independence in daily activities [Not Recovered/Not Resolved]

NARRATIVE: CASE EVENT DATE: 2020
